FAERS Safety Report 18300867 (Version 1)
Quarter: 2020Q3

REPORT INFORMATION
  Report Type: Spontaneous
  Country: US (occurrence: US)
  Receive Date: 20200923
  Receipt Date: 20200923
  Transmission Date: 20201103
  Serious: Yes (Hospitalization)
  Sender: FDA-Public Use
  Company Number: None

PATIENT
  Age: 87 Year
  Sex: Male
  Weight: 69.4 kg

DRUGS (1)
  1. SORAFENIB (SORAFENIB 200MG TAB) [Suspect]
     Active Substance: SORAFENIB
     Indication: HEPATOCELLULAR CARCINOMA
     Route: 048
     Dates: start: 20200511, end: 20200615

REACTIONS (6)
  - Nausea [None]
  - Acute kidney injury [None]
  - Vomiting [None]
  - Abdominal pain [None]
  - Acute myocardial infarction [None]
  - Diarrhoea [None]

NARRATIVE: CASE EVENT DATE: 20200611
